FAERS Safety Report 23968411 (Version 3)
Quarter: 2025Q2

REPORT INFORMATION
  Report Type: Spontaneous
  Country: FR (occurrence: FR)
  Receive Date: 20240612
  Receipt Date: 20250605
  Transmission Date: 20250717
  Serious: Yes (Death, Other)
  Sender: Vantive US Healthcare
  Company Number: FR-VANTIVE-2024VAN017533

PATIENT
  Sex: Male

DRUGS (1)
  1. REGIOCIT [Suspect]
     Active Substance: SODIUM CHLORIDE\SODIUM CITRATE
     Route: 065

REACTIONS (3)
  - Death [Fatal]
  - Necrosis [Unknown]
  - Incorrect route of product administration [Unknown]
